FAERS Safety Report 11242645 (Version 4)
Quarter: 2015Q4

REPORT INFORMATION
  Report Type: Spontaneous
  Country: JP (occurrence: None)
  Receive Date: 20150702
  Receipt Date: 20151012
  Transmission Date: 20160304
  Serious: Yes (Hospitalization, Other)
  Sender: FDA-Public Use
  Company Number: ADR-2015-01240

PATIENT
  Sex: Female
  Weight: 58 kg

DRUGS (1)
  1. GABALON INTRATHECAL (0.2%) [Suspect]
     Active Substance: BACLOFEN
     Dosage: 110MCG/DAY

REACTIONS (2)
  - Uterine cancer [None]
  - Endometrial cancer [None]
